FAERS Safety Report 18163713 (Version 1)
Quarter: 2020Q3

REPORT INFORMATION
  Report Type: Spontaneous
  Country: US (occurrence: US)
  Receive Date: 20200818
  Receipt Date: 20200818
  Transmission Date: 20201103
  Serious: Yes (Death, Hospitalization, Other)
  Sender: FDA-Public Use
  Company Number: US-GILEAD-2020-0490628

PATIENT
  Age: 62 Year
  Sex: Male
  Weight: 99 kg

DRUGS (3)
  1. TOCILIZUMAB. [Suspect]
     Active Substance: TOCILIZUMAB
     Indication: UPPER RESPIRATORY TRACT INFECTION
     Dosage: 400 MG, ONCE
     Route: 042
     Dates: start: 20200714, end: 20200714
  2. REMDESIVIR. [Suspect]
     Active Substance: REMDESIVIR
     Indication: COVID-19
     Dosage: 200 MG, ONCE
     Route: 042
     Dates: start: 20200710, end: 20200710
  3. REMDESIVIR. [Suspect]
     Active Substance: REMDESIVIR
     Indication: UPPER RESPIRATORY TRACT INFECTION
     Dosage: 100 MG, QD
     Route: 042
     Dates: start: 20200711, end: 20200719

REACTIONS (7)
  - Alanine aminotransferase increased [Unknown]
  - Blood urea increased [Unknown]
  - Death [Fatal]
  - Endotracheal intubation [Unknown]
  - Blood creatinine increased [Unknown]
  - Aspartate aminotransferase increased [Unknown]
  - General physical health deterioration [Unknown]

NARRATIVE: CASE EVENT DATE: 20200717
